FAERS Safety Report 6289595-3 (Version None)
Quarter: 2009Q3

REPORT INFORMATION
  Report Type: 
  Country: None (occurrence: None)
  Receive Date: 20090728
  Receipt Date: 20090728
  Transmission Date: 20100115
  Serious: Yes (Disabling)
  Sender: FDA-Public Use
  Company Number: None

PATIENT
  Sex: Male
  Weight: 90.7194 kg

DRUGS (2)
  1. ZICAM SWAB COLD REMEDY MATRIXX INIATIVES, INC [Suspect]
     Indication: NASOPHARYNGITIS
     Dosage: DAILY NASAL SPRING 2007
     Route: 045
     Dates: start: 20070101
  2. ZICAM SWAB ALERGY RELIEF MATRIXX INIATIVES, INC [Suspect]
     Indication: HYPERSENSITIVITY
     Dosage: DAILY NASAL SPRING 2009
     Route: 045
     Dates: start: 20090101

REACTIONS (1)
  - ANOSMIA [None]
